FAERS Safety Report 18995281 (Version 1)
Quarter: 2021Q1

REPORT INFORMATION
  Report Type: Spontaneous
  Country: US (occurrence: US)
  Receive Date: 20210311
  Receipt Date: 20210311
  Transmission Date: 20210420
  Serious: No
  Sender: FDA-Public Use
  Company Number: US-HETERO-HET2021US00472

PATIENT
  Sex: Female
  Weight: 170 kg

DRUGS (5)
  1. WARFARIN                           /00014802/ [Concomitant]
     Active Substance: WARFARIN
     Dosage: 3 MG QD, ON OTHER DAYS
     Route: 065
  2. WARFARIN                           /00014802/ [Concomitant]
     Active Substance: WARFARIN
     Indication: ANTICOAGULANT THERAPY
     Dosage: 2 MG, QD, ON MONDAY, WEDNESDAY AND FRIDAY
     Route: 065
  3. ATENOLOL. [Concomitant]
     Active Substance: ATENOLOL
     Indication: PRODUCT USED FOR UNKNOWN INDICATION
     Dosage: 120 MG, SHE WAS ON ATENOLOL BUT SWITCHED TO DILTIAZEM FOR A FEB ONCE A DAY
     Route: 065
  4. TORSEMIDE. [Suspect]
     Active Substance: TORSEMIDE
     Indication: PERIPHERAL SWELLING
     Dosage: 10 MG
     Route: 048
     Dates: start: 202102, end: 20210223
  5. BABY ASPIRIN [Concomitant]
     Active Substance: ASPIRIN
     Indication: ANTICOAGULANT THERAPY
     Dosage: 81 MG, QD
     Route: 065

REACTIONS (2)
  - Skin exfoliation [Not Recovered/Not Resolved]
  - Pruritus [Not Recovered/Not Resolved]
